FAERS Safety Report 4981727-X (Version None)
Quarter: 2006Q2

REPORT INFORMATION
  Report Type: 
  Country: None (occurrence: None)
  Receive Date: 20060420
  Receipt Date: 20060420
  Transmission Date: 20061013
  Serious: No
  Sender: FDA-Public Use
  Company Number: None

PATIENT
  Sex: Female
  Weight: 54.4316 kg

DRUGS (1)
  1. OXYTROL [Suspect]
     Indication: URINARY INCONTINENCE
     Dosage: 2 X WEEK   PATCH ON ABDOMEN
     Dates: start: 20030201, end: 20050801

REACTIONS (1)
  - ANGIONEUROTIC OEDEMA [None]
